FAERS Safety Report 10166118 (Version 2)
Quarter: 2014Q2

REPORT INFORMATION
  Report Type: Report from Study
  Country: BR (occurrence: BR)
  Receive Date: 20140512
  Receipt Date: 20140619
  Transmission Date: 20141212
  Serious: Yes (Hospitalization, Other)
  Sender: FDA-Public Use
  Company Number: BR-ORION CORPORATION ORION PHARMA-ENTC2014-0158

PATIENT
  Age: 79 Year
  Sex: Male
  Weight: 60 kg

DRUGS (4)
  1. STALEVO [Suspect]
     Indication: PARKINSON^S DISEASE
     Dosage: STRENGTH: 100 MG
     Route: 048
  2. STALEVO [Suspect]
     Dosage: ONE TABLET AND A HALF OF 100 MG TO TOTALIZE 150 MG
     Route: 048
     Dates: start: 20140211
  3. SEROQUEL [Concomitant]
     Indication: SLEEP DISORDER
     Dosage: STRENGTH: 25 MG
     Route: 065
     Dates: start: 20140211
  4. PROLOPA [Concomitant]
     Indication: PARKINSON^S DISEASE
     Dosage: STRENGTH: 200/50 MG
     Route: 048

REACTIONS (6)
  - Wrong technique in drug usage process [Unknown]
  - Product quality issue [Unknown]
  - Fall [Not Recovered/Not Resolved]
  - Asthenia [Not Recovered/Not Resolved]
  - Lower limb fracture [Not Recovered/Not Resolved]
  - Foot fracture [Not Recovered/Not Resolved]
